FAERS Safety Report 13037916 (Version 2)
Quarter: 2016Q4

REPORT INFORMATION
  Report Type: Report from Study
  Country: CO (occurrence: CO)
  Receive Date: 20161218
  Receipt Date: 20161223
  Transmission Date: 20170207
  Serious: Yes (Death, Hospitalization, Other)
  Sender: FDA-Public Use
  Company Number: CO-BRISTOL-MYERS SQUIBB COMPANY-BMS-2016-105426

PATIENT
  Age: 72 Year
  Sex: Male

DRUGS (1)
  1. DASATINIB [Suspect]
     Active Substance: DASATINIB
     Indication: CHRONIC MYELOID LEUKAEMIA
     Dosage: UNK, QD
     Route: 048
     Dates: start: 2011

REACTIONS (7)
  - Platelet count decreased [Not Recovered/Not Resolved]
  - Transfusion [Unknown]
  - Malignant neoplasm progression [Fatal]
  - Vomiting [Unknown]
  - Adverse event [Unknown]
  - Eating disorder [Unknown]
  - Haemoglobin decreased [Not Recovered/Not Resolved]

NARRATIVE: CASE EVENT DATE: 20161206
